FAERS Safety Report 9494020 (Version 1)
Quarter: 2013Q3

REPORT INFORMATION
  Report Type: Spontaneous
  Country: US (occurrence: None)
  Receive Date: 20130829
  Receipt Date: 20130829
  Transmission Date: 20140515
  Serious: No
  Sender: FDA-Public Use
  Company Number: None

PATIENT
  Age: 51 Year
  Sex: Female

DRUGS (1)
  1. SYNTHROID [Suspect]
     Indication: HYPOTHYROIDISM
     Dosage: SYNTHROID 75MCG DAILY ORALLY
     Route: 048

REACTIONS (3)
  - Product quality issue [None]
  - Drug level fluctuating [None]
  - Toxicity to various agents [None]
